FAERS Safety Report 7293104-X (Version None)
Quarter: 2011Q1

REPORT INFORMATION
  Report Type: 
  Country: None (occurrence: None)
  Receive Date: 20110215
  Receipt Date: 20110210
  Transmission Date: 20110831
  Serious: Yes (Hospitalization)
  Sender: FDA-Public Use
  Company Number: US-ABBOTT-11P-163-0701981-00

PATIENT
  Sex: Male

DRUGS (5)
  1. LITHIUM [Suspect]
     Indication: PRODUCT USED FOR UNKNOWN INDICATION
  2. COUMADIN [Concomitant]
     Indication: ATRIAL FIBRILLATION
  3. FLOMAX [Concomitant]
     Indication: PROSTATOMEGALY
  4. ATENOLOL [Concomitant]
     Indication: HYPERTENSION
  5. DEPAKOTE ER [Suspect]
     Indication: BIPOLAR DISORDER
     Dates: start: 20091001

REACTIONS (5)
  - GAIT DISTURBANCE [None]
  - FALL [None]
  - TOXICITY TO VARIOUS AGENTS [None]
  - COORDINATION ABNORMAL [None]
  - MONOPLEGIA [None]
